FAERS Safety Report 7958284-9 (Version None)
Quarter: 2011Q4

REPORT INFORMATION
  Report Type: 
  Country: None (occurrence: None)
  Receive Date: 20111205
  Receipt Date: 20061026
  Transmission Date: 20120403
  Serious: Yes (Other)
  Sender: FDA-Public Use
  Company Number: PHHY2006AR009175

PATIENT
  Sex: Male

DRUGS (1)
  1. DIOVAN [Suspect]
     Indication: HYPERTENSION
     Dosage: 160MG, 1 DF, OT

REACTIONS (3)
  - MENTAL DISORDER [None]
  - PNEUMONIA [None]
  - BLOOD PRESSURE INADEQUATELY CONTROLLED [None]
